FAERS Safety Report 5773454-6 (Version None)
Quarter: 2008Q2

REPORT INFORMATION
  Report Type: 
  Country: None (occurrence: None)
  Receive Date: 20080616
  Receipt Date: 20080610
  Transmission Date: 20081010
  Serious: Yes (Other)
  Sender: FDA-Public Use
  Company Number: US-BAYER-200818657NA

PATIENT
  Age: 43 Year
  Sex: Male
  Weight: 91 kg

DRUGS (1)
  1. AVELOX [Suspect]
     Indication: PNEUMONIA
     Dosage: TOTAL DAILY DOSE: 400 MG  UNIT DOSE: 400 MG
     Route: 048
     Dates: start: 20071211, end: 20071211

REACTIONS (5)
  - ANAPHYLACTIC REACTION [None]
  - DIZZINESS [None]
  - FLUSHING [None]
  - PRURITUS [None]
  - TACHYCARDIA [None]
